FAERS Safety Report 21297585 (Version 1)
Quarter: 2022Q3

REPORT INFORMATION
  Report Type: Spontaneous
  Country: US (occurrence: None)
  Receive Date: 20220902
  Receipt Date: 20220902
  Transmission Date: 20221027
  Serious: Yes (Hospitalization)
  Sender: FDA-Public Use
  Company Number: None

PATIENT
  Age: 63 Year
  Sex: Male
  Weight: 55.34 kg

DRUGS (1)
  1. CLINDAMYCIN HYDROCHLORIDE [Suspect]
     Active Substance: CLINDAMYCIN HYDROCHLORIDE
     Dosage: 300 MG BID PO?
     Route: 048
     Dates: start: 20220428, end: 20220507

REACTIONS (5)
  - Diarrhoea [None]
  - Vomiting [None]
  - Leukocytosis [None]
  - Colitis ischaemic [None]
  - Clostridium test positive [None]

NARRATIVE: CASE EVENT DATE: 20220616
